FAERS Safety Report 5313804-8 (Version None)
Quarter: 2007Q2

REPORT INFORMATION
  Report Type: 
  Country: None (occurrence: None)
  Receive Date: 20070501
  Receipt Date: 20070223
  Transmission Date: 20071010
  Serious: Yes (Other)
  Sender: FDA-Public Use
  Company Number: US-ROCHE-494419

PATIENT
  Age: 38 Year
  Sex: Female

DRUGS (4)
  1. INVIRASE [Suspect]
     Indication: DRUG USE FOR UNKNOWN INDICATION
     Route: 048
     Dates: start: 20061221
  2. COMBIVIR [Concomitant]
     Route: 048
     Dates: start: 20061221
  3. EPIVIR [Concomitant]
     Route: 048
     Dates: start: 20040601
  4. VIREAD [Concomitant]
     Route: 048
     Dates: start: 20040601

REACTIONS (2)
  - ABORTION INDUCED [None]
  - ECTOPIC PREGNANCY [None]
